FAERS Safety Report 9736397 (Version 2)
Quarter: 2013Q4

REPORT INFORMATION
  Report Type: Report from Study
  Country: FR (occurrence: FR)
  Receive Date: 20131206
  Receipt Date: 20131215
  Transmission Date: 20140711
  Serious: Yes (Hospitalization)
  Sender: FDA-Public Use
  Company Number: FR-PFIZER INC-2013337189

PATIENT
  Age: 60 Year
  Sex: Male

DRUGS (3)
  1. TORISEL [Suspect]
     Indication: NEOPLASM
     Dosage: 20 MG, WEEKLY
     Route: 042
     Dates: start: 20130506, end: 20131112
  2. ERBITUX [Suspect]
     Indication: NEOPLASM
     Dosage: BOLUS
     Dates: start: 20130429, end: 20130429
  3. ERBITUX [Suspect]
     Dosage: 495MG (250 MG/M2), WEEKLY
     Route: 042
     Dates: end: 20131112

REACTIONS (1)
  - Renal disorder [Unknown]
